FAERS Safety Report 8409599-1 (Version None)
Quarter: 2012Q2

REPORT INFORMATION
  Report Type: 
  Country: None (occurrence: None)
  Receive Date: 20120529
  Receipt Date: 20120517
  Transmission Date: 20120825
  Serious: Yes (Other)
  Sender: FDA-Public Use
  Company Number: DKLU1072164

PATIENT
  Age: 27 Year
  Sex: Male

DRUGS (8)
  1. DEPAKOTE [Concomitant]
  2. DILANTIN [Concomitant]
  3. NEURONTIN [Concomitant]
  4. TEGRETOL [Concomitant]
  5. LAMICTAL [Concomitant]
  6. SABRIL [Suspect]
     Indication: GRAND MAL CONVULSION
     Dosage: 1000 MG MILLIGRAM(S), EVERY MORNING, ORAL ; 1500 MG MILLIGRAM(S), EVERY EVENING, ORAL
     Route: 048
     Dates: start: 20100203
  7. SABRIL [Suspect]
     Indication: GRAND MAL CONVULSION
     Dosage: 1000 MG MILLIGRAM(S), EVERY MORNING, ORAL ; 1500 MG MILLIGRAM(S), EVERY EVENING, ORAL
     Route: 048
     Dates: start: 20100203
  8. FELBATOL [Concomitant]

REACTIONS (2)
  - RETINAL TOXICITY [None]
  - VISUAL FIELD DEFECT [None]
